FAERS Safety Report 11897380 (Version 3)
Quarter: 2016Q1

REPORT INFORMATION
  Report Type: Report from Study
  Country: US (occurrence: US)
  Receive Date: 20160108
  Receipt Date: 20160127
  Transmission Date: 20160526
  Serious: No
  Sender: FDA-Public Use
  Company Number: US-AMGEN-USASL2016000084

PATIENT
  Age: 58 Year
  Sex: Male

DRUGS (1)
  1. ENBREL [Suspect]
     Active Substance: ETANERCEPT
     Indication: PSORIATIC ARTHROPATHY
     Dosage: 50 MG, EVERY 10 DAYS
     Route: 065
     Dates: start: 201303

REACTIONS (5)
  - Malaise [Unknown]
  - Inappropriate schedule of drug administration [Unknown]
  - Cough [Recovering/Resolving]
  - Tendon rupture [Unknown]
  - Nasopharyngitis [Unknown]

NARRATIVE: CASE EVENT DATE: 201303
